FAERS Safety Report 7251347-5 (Version None)
Quarter: 2011Q1

REPORT INFORMATION
  Report Type: 
  Country: None (occurrence: None)
  Receive Date: 20110128
  Receipt Date: 20110119
  Transmission Date: 20110831
  Serious: Yes (Life-Threatening)
  Sender: FDA-Public Use
  Company Number: AU-ROCHE-754357

PATIENT
  Sex: Male

DRUGS (1)
  1. ACTEMRA [Suspect]
     Indication: RHEUMATOID ARTHRITIS
     Dosage: DOSE: MG/KG, VOLUME OF INFUSION: 34ML
     Route: 042
     Dates: start: 20101208

REACTIONS (4)
  - ATRIAL FIBRILLATION [None]
  - DYSPNOEA [None]
  - CHEST PAIN [None]
  - PRURITUS [None]
